FAERS Safety Report 24838492 (Version 2)
Quarter: 2025Q2

REPORT INFORMATION
  Report Type: Spontaneous
  Country: US (occurrence: US)
  Receive Date: 20250113
  Receipt Date: 20250403
  Transmission Date: 20250717
  Serious: No
  Sender: CALLIDITAS THERAPEUTICS
  Company Number: US-Calliditas-2024CAL02729

PATIENT
  Age: 35 Year
  Sex: Female
  Weight: 92 kg

DRUGS (8)
  1. TARPEYO [Suspect]
     Active Substance: BUDESONIDE
     Indication: IgA nephropathy
     Route: 048
     Dates: start: 20240806, end: 20250225
  2. AMLODIPINE [Concomitant]
     Active Substance: AMLODIPINE BESYLATE
  3. FARXIGA [Concomitant]
     Active Substance: DAPAGLIFLOZIN PROPANEDIOL
  4. LOSARTAN [Concomitant]
     Active Substance: LOSARTAN
  5. SODIUM BICARBONATE [Concomitant]
     Active Substance: SODIUM BICARBONATE
  6. VITAMIN D3 [Concomitant]
     Active Substance: CHOLECALCIFEROL
  7. FUROSEMIDE [Concomitant]
     Active Substance: FUROSEMIDE
  8. ALLOPURINOL [Concomitant]
     Active Substance: ALLOPURINOL

REACTIONS (9)
  - Oedema [Recovering/Resolving]
  - Swelling face [Recovering/Resolving]
  - Acne [Not Recovered/Not Resolved]
  - Hirsutism [Not Recovered/Not Resolved]
  - Pruritus [Not Recovered/Not Resolved]
  - Upper respiratory tract infection [Not Recovered/Not Resolved]
  - Weight increased [Not Recovered/Not Resolved]
  - Generalised oedema [Unknown]
  - Swelling [Unknown]

NARRATIVE: CASE EVENT DATE: 20240101
